FAERS Safety Report 8133790-5 (Version None)
Quarter: 2012Q1

REPORT INFORMATION
  Report Type: 
  Country: None (occurrence: None)
  Receive Date: 20120213
  Receipt Date: 20120213
  Transmission Date: 20120608
  Serious: Yes (Other)
  Sender: FDA-Public Use
  Company Number: None

PATIENT
  Age: 3 Year
  Sex: Male
  Weight: 15.875 kg

DRUGS (1)
  1. SINGULAIR [Suspect]
     Indication: BRONCHIAL HYPERREACTIVITY
     Dosage: 4MG CHEWABLE
     Route: 048
     Dates: start: 20120125, end: 20120210

REACTIONS (4)
  - VOMITING [None]
  - CONDITION AGGRAVATED [None]
  - ASTHMA [None]
  - RETCHING [None]
